FAERS Safety Report 9910827 (Version 1)
Quarter: 2014Q1

REPORT INFORMATION
  Report Type: Spontaneous
  Country: NL (occurrence: NL)
  Receive Date: 20140219
  Receipt Date: 20140219
  Transmission Date: 20141002
  Serious: Yes (Life-Threatening)
  Sender: FDA-Public Use
  Company Number: NL-BAYER-2014-020942

PATIENT
  Age: 62 Year
  Sex: Female
  Weight: 96 kg

DRUGS (15)
  1. CIPROFLOXACIN MONOHYDROCHLORIDE [Suspect]
     Dosage: 500 MG, BID
     Dates: start: 20140128
  2. MONTELUKAST [Concomitant]
     Dosage: 10 MG, QD
     Dates: start: 2003
  3. NASONEX [Concomitant]
     Dosage: 1 DF, QD
     Dates: start: 2009
  4. DERMOVATE [Concomitant]
     Dosage: UNK UNK, PRN
     Dates: start: 2007
  5. NITROGLYCERINE [Concomitant]
     Dosage: UNK UNK, PRN
     Route: 060
     Dates: start: 201308
  6. PARACETAMOL [Concomitant]
     Dosage: 500 MG, PRN
  7. XOLAIR [Concomitant]
     Dosage: 1 DF, OW
     Dates: start: 2007
  8. PREDNISOLON [Concomitant]
     Dosage: 30 MG, QD
     Dates: start: 20140128
  9. LISINOPRIL [Concomitant]
     Dosage: 10 MG, QD
     Dates: start: 2009
  10. CYRESS [Concomitant]
     Dosage: 10 MG, QD
     Dates: start: 201309
  11. TEMAZEPAM [Concomitant]
     Dosage: 20 MG, QD
     Dates: start: 2005
  12. SERETIDE DISKUS [Concomitant]
     Dosage: 1 DF, BID
     Dates: start: 1998
  13. VENTOLIN [Concomitant]
     Dosage: UNK UNK, PRN
     Dates: start: 1980
  14. EPINEPHRINE HYDROCHLORIDE [Concomitant]
     Dosage: UNK UNK, PRN
     Dates: start: 2003
  15. ESTRADIOL [Concomitant]
     Dosage: 1 DF, TWO TIMES PER 1 WEEK
     Dates: start: 201203

REACTIONS (6)
  - Visual impairment [Recovered/Resolved]
  - Dizziness [Recovered/Resolved]
  - Agitation [Recovered/Resolved]
  - Paraesthesia [Recovered/Resolved]
  - Palpitations [Recovered/Resolved]
  - Chest discomfort [Recovered/Resolved]
